FAERS Safety Report 5951617-4 (Version None)
Quarter: 2008Q4

REPORT INFORMATION
  Report Type: 
  Country: None (occurrence: None)
  Receive Date: 20081113
  Receipt Date: 20081111
  Transmission Date: 20090506
  Serious: Yes (Life-Threatening, Other)
  Sender: FDA-Public Use
  Company Number: PHEH2008US10122

PATIENT
  Sex: Female

DRUGS (2)
  1. MIACALCIN [Suspect]
     Indication: OSTEOPOROSIS
  2. MIACALCIN [Suspect]
     Indication: OSTEOPENIA

REACTIONS (5)
  - ANAPHYLACTIC SHOCK [None]
  - ARTHRALGIA [None]
  - INTERVERTEBRAL DISC DEGENERATION [None]
  - PAIN [None]
  - SPONDYLITIS [None]
